FAERS Safety Report 17335108 (Version 3)
Quarter: 2024Q2

REPORT INFORMATION
  Report Type: Spontaneous
  Country: LV (occurrence: LV)
  Receive Date: 20200128
  Receipt Date: 20240404
  Transmission Date: 20240716
  Serious: Yes (Life-Threatening)
  Sender: FDA-Public Use
  Company Number: LV-NOVOPROD-708477

PATIENT
  Age: 38 Year
  Sex: Female

DRUGS (3)
  1. LEVEMIR [Suspect]
     Active Substance: INSULIN DETEMIR
     Indication: Gestational diabetes
     Dosage: 10-12 U
     Route: 058
     Dates: start: 201801
  2. METHYLDOPA [Concomitant]
     Active Substance: METHYLDOPA
     Indication: Blood pressure abnormal
     Dosage: 250 MG (DOSE INCREASED AS PER BLOOD PRESSURE)
     Route: 048
     Dates: start: 20180426
  3. NOVORAPID [Suspect]
     Active Substance: INSULIN ASPART
     Indication: Product used for unknown indication
     Dosage: 6-12 U
     Route: 058
     Dates: start: 201801

REACTIONS (3)
  - Pre-eclampsia [Unknown]
  - Premature delivery [Recovered/Resolved]
  - Maternal exposure during pregnancy [Recovered/Resolved]

NARRATIVE: CASE EVENT DATE: 20180101
